FAERS Safety Report 24655978 (Version 1)
Quarter: 2024Q4

REPORT INFORMATION
  Report Type: Spontaneous
  Country: US (occurrence: US)
  Receive Date: 20241124
  Receipt Date: 20241124
  Transmission Date: 20250115
  Serious: No
  Sender: SANOFI AVENTIS
  Company Number: US-SA-2024SA340308

PATIENT
  Sex: Female
  Weight: 118.18 kg

DRUGS (6)
  1. DUPIXENT [Suspect]
     Active Substance: DUPILUMAB
     Indication: Asthma
     Dosage: 600 MG, 1X
     Route: 058
  2. DUPIXENT [Suspect]
     Active Substance: DUPILUMAB
     Dosage: 300 MG, QOW
     Route: 058
  3. NUCALA [Concomitant]
     Active Substance: MEPOLIZUMAB
  4. SINGULAIR [Concomitant]
     Active Substance: MONTELUKAST SODIUM
  5. FLONASE SENSIMIST ALLERGY RELIEF [Concomitant]
     Active Substance: FLUTICASONE FUROATE
  6. ZYRTEC [Concomitant]
     Active Substance: CETIRIZINE HYDROCHLORIDE

REACTIONS (2)
  - Cough [Unknown]
  - Headache [Unknown]
